FAERS Safety Report 13652131 (Version 1)
Quarter: 2017Q2

REPORT INFORMATION
  Report Type: Report from Study
  Country: IT (occurrence: IT)
  Receive Date: 20170614
  Receipt Date: 20170614
  Transmission Date: 20170830
  Serious: Yes (Hospitalization)
  Sender: FDA-Public Use
  Company Number: IT-AMGEN-ITACT2012078317

PATIENT
  Age: 49 Year
  Sex: Female
  Weight: 66 kg

DRUGS (23)
  1. AMG 386 [Suspect]
     Active Substance: TREBANANIB
     Indication: OVARIAN CANCER
     Dosage: UNK
     Dates: start: 20120510, end: 20120925
  2. TAPAZOLE [Concomitant]
     Active Substance: METHIMAZOLE
     Dosage: 2.5 MG, UNK
     Route: 048
  3. CENTRUM [Concomitant]
     Active Substance: VITAMINS
     Dosage: UNK
     Route: 048
     Dates: start: 20120510
  4. LANSOPRAZOLE. [Concomitant]
     Active Substance: LANSOPRAZOLE
     Dosage: 30 MG, UNK
     Route: 048
     Dates: start: 20120510
  5. PACLITAXEL. [Concomitant]
     Active Substance: PACLITAXEL
     Indication: OVARIAN CANCER
     Dosage: 296 MG, UNK
     Route: 042
     Dates: start: 20120504, end: 20120925
  6. MOVICOL [Concomitant]
     Active Substance: POLYETHYLENE GLYCOL 3350\POTASSIUM CHLORIDE\SODIUM BICARBONATE\SODIUM CHLORIDE
     Dosage: 13.8 G, UNK
     Route: 048
     Dates: start: 20120510, end: 20120925
  7. SOLDESAM [Concomitant]
     Active Substance: DEXAMETHASONE
     Dosage: 8 MG, UNK
     Dates: start: 20120504, end: 20120925
  8. TAD [Concomitant]
     Dosage: 900 MG, UNK
     Route: 042
     Dates: start: 20121107, end: 20121107
  9. PARACETAMOL [Concomitant]
     Active Substance: ACETAMINOPHEN
     Dosage: 1000 MG, UNK
     Dates: start: 20120510
  10. CLEXANE [Concomitant]
     Active Substance: ENOXAPARIN SODIUM
     Dosage: 4000 IU, UNK
     Route: 058
     Dates: start: 20121106, end: 20121205
  11. RINGER [Concomitant]
     Active Substance: RINGER^S SOLUTION
     Dosage: 1000 ML, UNK
     Route: 042
     Dates: start: 20121105, end: 20121110
  12. NAVOBAN [Concomitant]
     Active Substance: TROPISETRON HYDROCHLORIDE
     Dosage: 10 MG, UNK
     Route: 042
     Dates: start: 20120504, end: 20120925
  13. IRON [Concomitant]
     Active Substance: IRON
     Dosage: 62.5 MG, UNK
     Route: 042
     Dates: start: 20121107, end: 20121114
  14. RANITIDINE. [Concomitant]
     Active Substance: RANITIDINE
     Dosage: 200 MG, UNK
     Route: 042
     Dates: start: 20120504, end: 20121110
  15. CARBOPLATIN. [Concomitant]
     Active Substance: CARBOPLATIN
     Indication: OVARIAN CANCER
     Dosage: 670 MG, UNK
     Route: 042
     Dates: start: 20120504, end: 20120925
  16. ZOFRAN [Concomitant]
     Active Substance: ONDANSETRON HYDROCHLORIDE
     Dosage: 4 MG, UNK
     Route: 042
     Dates: start: 20120511, end: 20121108
  17. PLASIL [Concomitant]
     Active Substance: METOCLOPRAMIDE HYDROCHLORIDE
     Dosage: 10 MG, UNK
     Route: 048
     Dates: start: 20120510, end: 20120925
  18. DEFLAMON [Concomitant]
     Dosage: 500 MG, UNK
     Route: 042
     Dates: start: 20121105, end: 20121114
  19. CALCIUM GLUCONATE. [Concomitant]
     Active Substance: CALCIUM GLUCONATE
     Dosage: 10 ML, UNK
     Route: 042
     Dates: start: 20121106, end: 20121114
  20. ALBUMINE [Concomitant]
     Dosage: 50 MG, UNK
     Route: 042
     Dates: start: 20121109, end: 20121111
  21. URBASON [Concomitant]
     Active Substance: METHYLPREDNISOLONE
     Dosage: 40 MG, UNK
     Route: 042
     Dates: start: 20120504, end: 20120925
  22. TRIMETON [Concomitant]
     Active Substance: CHLORPHENIRAMINE MALEATE
     Dosage: UNK
     Dates: start: 20120504, end: 20120925
  23. ANTRA [Concomitant]
     Active Substance: OMEPRAZOLE
     Dosage: 20 MG, UNK
     Route: 048
     Dates: start: 20121115, end: 20121215

REACTIONS (1)
  - Pleural effusion [Recovered/Resolved]

NARRATIVE: CASE EVENT DATE: 20121119
